FAERS Safety Report 7702388 (Version 3)
Quarter: 2013Q2

REPORT INFORMATION
  Report Type: Report from Study
  Country: CA (occurrence: CA)
  Receive Date: 20101209
  Receipt Date: 20130603
  Transmission Date: 20140414
  Serious: Yes (Other)
  Sender: FDA-Public Use
  Company Number: CA-CELGENEUS-028-C5013-10113187

PATIENT
  Age: 76 Year
  Sex: Female
  Weight: 72 kg

DRUGS (16)
  1. CC-5013 [Suspect]
     Indication: CHRONIC LYMPHOCYTIC LEUKAEMIA
     Dosage: 2.5 MILLIGRAM
     Route: 048
     Dates: start: 20100615
  2. CC-5013 [Suspect]
     Dosage: 5 MILLIGRAM
     Route: 048
     Dates: start: 20101102, end: 20101129
  3. CC-5013 [Suspect]
     Dosage: 5 MILLIGRAM
     Route: 048
     Dates: start: 20101130
  4. ADALAT [Concomitant]
     Indication: HYPERTENSION
     Dosage: 30 MILLIGRAM
     Route: 048
     Dates: start: 1995
  5. LOZIDE [Concomitant]
     Indication: HYPERTENSION
     Dosage: 2.5 MILLIGRAM
     Route: 048
     Dates: start: 1995
  6. SYNTHROID [Concomitant]
     Indication: HYPOTHYROIDISM
     Dosage: .05 MILLIGRAM
     Route: 048
     Dates: start: 1990
  7. NOVASEN [Concomitant]
     Indication: CARDIOVASCULAR EVENT PROPHYLAXIS
     Dosage: 325 MILLIGRAM
     Route: 048
     Dates: start: 2000
  8. ACETAMINOPHEN [Concomitant]
     Indication: PYREXIA
     Dosage: 500 MILLIGRAM
     Route: 048
     Dates: start: 20100618, end: 20100620
  9. CIPRO [Concomitant]
     Indication: URINARY TRACT INFECTION
     Dosage: 500 MILLIGRAM
     Route: 048
     Dates: start: 20100621, end: 20100625
  10. CIPRO [Concomitant]
     Dosage: 500 MILLIGRAM
     Route: 048
     Dates: start: 20101119, end: 20101123
  11. PROCHLORPERAZINE [Concomitant]
     Indication: NAUSEA
     Dosage: 10 MILLIGRAM
     Route: 048
     Dates: start: 20100618
  12. PACKED RED BLOOD CELLS [Concomitant]
     Indication: ANAEMIA
     Dosage: 2 BAGS
     Route: 041
     Dates: start: 20100622, end: 20100622
  13. ALLOPURINOL [Concomitant]
     Indication: PROPHYLAXIS
     Dosage: 300 MILLIGRAM
     Route: 048
     Dates: start: 20100612
  14. ALLOPURINOL [Concomitant]
     Dosage: 100 MILLIGRAM
     Route: 048
     Dates: start: 20101026
  15. LIPTOR [Concomitant]
     Indication: HYPERCHOLESTEROLAEMIA
     Dosage: 20 MILLIGRAM
     Dates: start: 20101102
  16. LOPERAMIDE [Concomitant]
     Indication: DIARRHOEA
     Route: 048
     Dates: start: 20101009

REACTIONS (1)
  - Maculopathy [Recovered/Resolved]
